FAERS Safety Report 6356102-6 (Version None)
Quarter: 2009Q3

REPORT INFORMATION
  Report Type: 
  Country: None (occurrence: None)
  Receive Date: 20090915
  Receipt Date: 20090226
  Transmission Date: 20100115
  Serious: No
  Sender: FDA-Public Use
  Company Number: US-BAYER-200914945NA

PATIENT
  Sex: Female

DRUGS (2)
  1. MIRENA [Suspect]
     Indication: DRUG USE FOR UNKNOWN INDICATION
     Dosage: CONTINUOUS
     Route: 015
     Dates: start: 20081117, end: 20090225
  2. MIRENA [Suspect]
     Dosage: CONTINUOUS (REPLACEMENT)
     Route: 015
     Dates: start: 20090225

REACTIONS (1)
  - IUCD COMPLICATION [None]
